FAERS Safety Report 18772821 (Version 1)
Quarter: 2021Q1

REPORT INFORMATION
  Report Type: Spontaneous
  Country: US (occurrence: US)
  Receive Date: 20210121
  Receipt Date: 20210121
  Transmission Date: 20210419
  Serious: No
  Sender: FDA-Public Use
  Company Number: None

PATIENT
  Age: 31 Year
  Sex: Female

DRUGS (1)
  1. TOBRAMYCIN NEB 300MG/4ML [Suspect]
     Active Substance: TOBRAMYCIN
     Dosage: ?          OTHER DOSE:300MG/4ML;?
     Route: 048
     Dates: start: 202012

REACTIONS (2)
  - Dyspnoea [None]
  - Cough [None]

NARRATIVE: CASE EVENT DATE: 20201205
